FAERS Safety Report 24834173 (Version 2)
Quarter: 2025Q3

REPORT INFORMATION
  Report Type: Report from Study
  Country: CA (occurrence: CA)
  Receive Date: 20250113
  Receipt Date: 20250708
  Transmission Date: 20251021
  Serious: Yes (Other)
  Sender: TAKEDA
  Company Number: CA-TAKEDA-2023TUS114206

PATIENT
  Sex: Male

DRUGS (4)
  1. VEDOLIZUMAB [Suspect]
     Active Substance: VEDOLIZUMAB
     Indication: Colitis ulcerative
     Dates: start: 20230424, end: 20230926
  2. VEDOLIZUMAB [Suspect]
     Active Substance: VEDOLIZUMAB
  3. VEDOLIZUMAB [Suspect]
     Active Substance: VEDOLIZUMAB
  4. VEDOLIZUMAB [Suspect]
     Active Substance: VEDOLIZUMAB

REACTIONS (14)
  - Haematochezia [Unknown]
  - Anorectal sensory loss [Unknown]
  - Dyspepsia [Not Recovered/Not Resolved]
  - Drug ineffective [Unknown]
  - Faeces soft [Unknown]
  - Frequent bowel movements [Unknown]
  - Faeces hard [Unknown]
  - Mucous stools [Unknown]
  - Diarrhoea [Unknown]
  - Dyschezia [Unknown]
  - Abdominal pain [Unknown]
  - Malaise [Unknown]
  - Flatulence [Unknown]
  - Constipation [Unknown]
